FAERS Safety Report 24089396 (Version 1)
Quarter: 2024Q3

REPORT INFORMATION
  Report Type: Spontaneous
  Country: US (occurrence: US)
  Receive Date: 20240715
  Receipt Date: 20240715
  Transmission Date: 20241016
  Serious: No
  Sender: TAKEDA
  Company Number: US-TAKEDA-2024TUS070428

PATIENT
  Age: 23 Month
  Sex: Female
  Weight: 8 kg

DRUGS (2)
  1. VPRIV [Suspect]
     Active Substance: VELAGLUCERASE ALFA
     Indication: Gaucher^s disease
     Dosage: 400 INTERNATIONAL UNIT, 1/WEEK
     Route: 042
     Dates: start: 20240417
  2. FAMOTIDINE [Concomitant]
     Active Substance: FAMOTIDINE
     Dosage: UNK
     Route: 065

REACTIONS (2)
  - Infusion site extravasation [Unknown]
  - Product use issue [Unknown]

NARRATIVE: CASE EVENT DATE: 20240417
